FAERS Safety Report 18119250 (Version 2)
Quarter: 2020Q3

REPORT INFORMATION
  Report Type: Spontaneous
  Country: US (occurrence: US)
  Receive Date: 20200806
  Receipt Date: 20200814
  Transmission Date: 20201103
  Serious: No
  Sender: FDA-Public Use
  Company Number: US-GLENMARK PHARMACEUTICALS-2020GMK048296

PATIENT

DRUGS (4)
  1. ACYCLOVIR OINTMENT USP [Suspect]
     Active Substance: ACYCLOVIR
     Indication: ORAL HERPES
     Dosage: UNK UNK, OD
     Route: 061
     Dates: start: 20200612, end: 20200612
  2. ACYCLOVIR OINTMENT USP [Suspect]
     Active Substance: ACYCLOVIR
     Dosage: UNK UNK, OD
     Route: 061
     Dates: start: 20200614, end: 20200614
  3. ACYCLOVIR OINTMENT USP [Suspect]
     Active Substance: ACYCLOVIR
     Dosage: UNK UNK, TID (3X A DAY)
     Route: 061
     Dates: start: 20200613, end: 20200613
  4. ACYCLOVIR OINTMENT USP [Suspect]
     Active Substance: ACYCLOVIR
     Dosage: UNK UNK, TID (3X A DAY)
     Route: 061
     Dates: start: 20200615

REACTIONS (6)
  - Product packaging quantity issue [Unknown]
  - No adverse event [Unknown]
  - Product primary packaging issue [Unknown]
  - Product physical consistency issue [Unknown]
  - Product prescribing error [Unknown]
  - Inappropriate schedule of product administration [Unknown]

NARRATIVE: CASE EVENT DATE: 20200613
